FAERS Safety Report 11829251 (Version 2)
Quarter: 2016Q1

REPORT INFORMATION
  Report Type: Spontaneous
  Country: US (occurrence: US)
  Receive Date: 20151211
  Receipt Date: 20160203
  Transmission Date: 20160525
  Serious: Yes (Death)
  Sender: FDA-Public Use
  Company Number: US-BAUSCH-BL-2015-011897

PATIENT
  Age: 70 Year
  Sex: Male
  Weight: 65.83 kg

DRUGS (7)
  1. XENAZINE [Suspect]
     Active Substance: TETRABENAZINE
     Route: 048
     Dates: start: 20150417
  2. MELATONIN [Concomitant]
     Active Substance: MELATONIN
     Indication: SLEEP DISORDER
  3. XENAZINE [Suspect]
     Active Substance: TETRABENAZINE
     Indication: HUNTINGTON^S DISEASE
     Route: 048
     Dates: start: 201504
  4. XENAZINE [Suspect]
     Active Substance: TETRABENAZINE
     Dosage: ? TABLET IN THE MORNING, ? TABLET IN THE AFTERNOON, AND 1 TABLET AT NIGHT
     Route: 048
  5. TETRABENAZINE. [Suspect]
     Active Substance: TETRABENAZINE
     Indication: PRODUCT USED FOR UNKNOWN INDICATION
     Route: 065
     Dates: start: 2015
  6. XENAZINE [Suspect]
     Active Substance: TETRABENAZINE
     Dosage: 1 TABLET IN THE MORNING AND EVENING AND HALF TABLET AT NOON
     Route: 048
     Dates: start: 20150416
  7. XENAZINE [Suspect]
     Active Substance: TETRABENAZINE
     Dosage: 25MG IN THE MORNING, 12.5MG IN THE AFTERNOON, AND 25MG IN THE EVENING.
     Route: 048
     Dates: start: 20150602

REACTIONS (11)
  - Erythema [Not Recovered/Not Resolved]
  - Restlessness [Not Recovered/Not Resolved]
  - Somnolence [Not Recovered/Not Resolved]
  - Decreased appetite [Unknown]
  - Productive cough [Unknown]
  - Fatigue [Not Recovered/Not Resolved]
  - Death [Fatal]
  - Local swelling [Not Recovered/Not Resolved]
  - Weight decreased [Unknown]
  - Vomiting [Unknown]
  - Memory impairment [Not Recovered/Not Resolved]

NARRATIVE: CASE EVENT DATE: 2015
